FAERS Safety Report 21219579 (Version 1)
Quarter: 2022Q3

REPORT INFORMATION
  Report Type: Spontaneous
  Country: PT (occurrence: PT)
  Receive Date: 20220817
  Receipt Date: 20220817
  Transmission Date: 20221027
  Serious: Yes (Other)
  Sender: FDA-Public Use
  Company Number: PT-INFARMED-G202207-6501

PATIENT
  Age: 45 Year
  Sex: Female

DRUGS (1)
  1. AMOXICILLIN\CLAVULANIC ACID [Suspect]
     Active Substance: AMOXICILLIN\CLAVULANIC ACID
     Indication: Dental care
     Dosage: 1 ARBITRARY UNITS (875+125MG DE  12/12 HORAS 8DIAS)
     Route: 048
     Dates: start: 202201

REACTIONS (4)
  - Anal pruritus [Recovered/Resolved]
  - Dyspnoea [Recovered/Resolved]
  - Pruritus genital [Recovered/Resolved]
  - Wheezing [Recovered/Resolved]

NARRATIVE: CASE EVENT DATE: 20220101
